FAERS Safety Report 6921620-6 (Version None)
Quarter: 2010Q3

REPORT INFORMATION
  Report Type: 
  Country: None (occurrence: None)
  Receive Date: 20100805
  Receipt Date: 20100604
  Transmission Date: 20110219
  Serious: No
  Sender: FDA-Public Use
  Company Number: US-002208

PATIENT
  Sex: Male
  Weight: 113.3993 kg

DRUGS (7)
  1. DEGARELIX 240 MG [Suspect]
     Dosage: (240 MG QD SUBCUTANEOUS)
     Route: 058
     Dates: start: 20100602
  2. COUMADIN /00627701/ [Concomitant]
  3. COZAAR [Concomitant]
  4. ZOCOR [Concomitant]
  5. NESIUM HP [Concomitant]
  6. LASIX [Concomitant]
  7. ASPIRIN [Concomitant]

REACTIONS (2)
  - INJECTION SITE ERYTHEMA [None]
  - INJECTION SITE PAIN [None]
